FAERS Safety Report 6373763-6 (Version None)
Quarter: 2009Q3

REPORT INFORMATION
  Report Type: 
  Country: None (occurrence: None)
  Receive Date: 20090924
  Receipt Date: 20090709
  Transmission Date: 20100115
  Serious: Yes (Other)
  Sender: FDA-Public Use
  Company Number: US-ASTRAZENECA-2009UW13437

PATIENT
  Age: 22 Year
  Sex: Female
  Weight: 111.1 kg

DRUGS (9)
  1. SEROQUEL [Suspect]
     Indication: INSOMNIA
     Route: 048
     Dates: start: 19970101, end: 20070101
  2. RISPERDAL [Concomitant]
     Dates: start: 19970101
  3. ABILIFY [Concomitant]
     Dates: start: 19970101
  4. GEODON [Concomitant]
  5. DULOXETINE [Concomitant]
     Dosage: 60 MG TO 120 MG
  6. MIRTAZAPINE [Concomitant]
     Dates: start: 19980101, end: 19990101
  7. CLONAZEPAM [Concomitant]
     Dosage: 0.5 MG TO 1 MG
  8. NEFAZODONE HCL [Concomitant]
     Dates: start: 19970101
  9. LORAZEPAM [Concomitant]
     Dates: start: 19970101

REACTIONS (6)
  - BLOOD CHOLESTEROL INCREASED [None]
  - EYE DISORDER [None]
  - OBESITY [None]
  - SINUSITIS [None]
  - SUICIDE ATTEMPT [None]
  - TYPE 2 DIABETES MELLITUS [None]
